FAERS Safety Report 13663862 (Version 1)
Quarter: 2017Q2

REPORT INFORMATION
  Report Type: Spontaneous
  Country: US (occurrence: US)
  Receive Date: 20170619
  Receipt Date: 20170619
  Transmission Date: 20170830
  Serious: No
  Sender: FDA-Public Use
  Company Number: US-TEVA-750148USA

PATIENT
  Sex: Male

DRUGS (2)
  1. TRAMADOL. [Suspect]
     Active Substance: TRAMADOL
  2. MARIJUANA [Concomitant]
     Active Substance: CANNABIS SATIVA SUBSP. INDICA TOP
     Indication: POST-TRAUMATIC STRESS DISORDER

REACTIONS (3)
  - Mobility decreased [Not Recovered/Not Resolved]
  - Drug effect decreased [Unknown]
  - Quality of life decreased [Not Recovered/Not Resolved]
